FAERS Safety Report 9744903 (Version 2)
Quarter: 2013Q4

REPORT INFORMATION
  Report Type: Spontaneous
  Country: US (occurrence: US)
  Receive Date: 20131211
  Receipt Date: 20131211
  Transmission Date: 20140711
  Serious: No
  Sender: FDA-Public Use
  Company Number: US-BEH-2013034389

PATIENT
  Age: 53 Year
  Sex: Female
  Weight: 112 kg

DRUGS (7)
  1. HIZENTRA [Suspect]
     Route: 058
     Dates: start: 20121120
  2. HIZENTRA [Suspect]
     Dosage: INFUSE OVER 1 HOUR 40 MINUTES
     Route: 058
     Dates: start: 20121225, end: 20121225
  3. HIZENTRA [Suspect]
     Route: 058
     Dates: start: 20121225, end: 20121225
  4. HIZENTRA [Suspect]
     Dosage: INFUSE 1 HOUR AND 40 MINUTES
     Route: 058
     Dates: start: 20130101, end: 20130101
  5. HIZENTRA [Suspect]
     Indication: IMMUNODEFICIENCY COMMON VARIABLE
     Dosage: INFUSE 1 HOUR 40 MINUTES
     Route: 058
     Dates: start: 20130101, end: 20130101
  6. BENADRYL [Concomitant]
     Indication: PROPHYLAXIS
     Route: 048
  7. TYLENOL [Concomitant]
     Indication: PROPHYLAXIS
     Route: 048

REACTIONS (6)
  - Blister [Recovered/Resolved]
  - Blister [Recovered/Resolved]
  - Skin haemorrhage [Recovered/Resolved]
  - Erythema [Unknown]
  - Pruritus [Unknown]
  - Abdominal pain [Unknown]
